FAERS Safety Report 9735559 (Version 1)
Quarter: 2013Q4

REPORT INFORMATION
  Report Type: Spontaneous
  Country: US (occurrence: US)
  Receive Date: 20131206
  Receipt Date: 20131206
  Transmission Date: 20140711
  Serious: No
  Sender: FDA-Public Use
  Company Number: US-GILEAD-2009-0023930

PATIENT
  Age: 57 Year
  Sex: Female
  Weight: 46.27 kg

DRUGS (12)
  1. LETAIRIS [Suspect]
     Indication: PULMONARY ARTERIAL HYPERTENSION
     Route: 048
     Dates: start: 20090811
  2. REVATIO [Concomitant]
  3. COUMADIN [Concomitant]
  4. CELLCEPT [Concomitant]
  5. COZAAR [Concomitant]
  6. MEDROL [Concomitant]
  7. LASIX [Concomitant]
  8. K-DUR [Concomitant]
  9. CRESTOR [Concomitant]
  10. ZETIA [Concomitant]
  11. VESICARE [Concomitant]
  12. CYCLOSPORINE [Concomitant]

REACTIONS (1)
  - Vision blurred [Not Recovered/Not Resolved]
